FAERS Safety Report 12465849 (Version 2)
Quarter: 2016Q2

REPORT INFORMATION
  Report Type: Report from Study
  Country: HN (occurrence: HN)
  Receive Date: 20160614
  Receipt Date: 20160627
  Transmission Date: 20160815
  Serious: No
  Sender: FDA-Public Use
  Company Number: PHHY2016HN080375

PATIENT
  Age: 87 Year
  Sex: Female

DRUGS (3)
  1. CO-DIOVAN [Suspect]
     Active Substance: HYDROCHLOROTHIAZIDE\VALSARTAN
     Indication: CARDIAC DISORDER
     Dosage: 1 DF, (HYDROCHLOROTHIAZIDE 25 MG, VALSARTAN 320 MG)
     Route: 065
  2. CO-DIOVAN [Suspect]
     Active Substance: HYDROCHLOROTHIAZIDE\VALSARTAN
     Dosage: UNK
     Route: 065
     Dates: start: 20160608
  3. CATINOL [Concomitant]
     Indication: DEMENTIA ALZHEIMER^S TYPE
     Route: 065

REACTIONS (1)
  - Product use issue [Unknown]
